FAERS Safety Report 26114469 (Version 1)
Quarter: 2025Q4

REPORT INFORMATION
  Report Type: Other
  Country: US (occurrence: US)
  Receive Date: 20251202
  Receipt Date: 20251202
  Transmission Date: 20260118
  Serious: Yes (Congenital Anomaly, Other)
  Sender: HLS THERAPEUTICS
  Company Number: US-HLS-202500409

PATIENT

DRUGS (1)
  1. CLOZAPINE [Suspect]
     Active Substance: CLOZAPINE
     Indication: Schizophrenia
     Dosage: DOSE HISTORY:?INITIATED AFTER ECT FAILURE; AT 35 WEEKS OF GESTATION, CLOZAPINE LEVEL WAS 594?NG/ML (
     Route: 048

REACTIONS (3)
  - Foetal hypokinesia [Recovered/Resolved]
  - Foetal heart rate decreased [Recovered/Resolved]
  - Exposure during pregnancy [Recovered/Resolved]
